FAERS Safety Report 5227039-0 (Version None)
Quarter: 2007Q1

REPORT INFORMATION
  Report Type: 
  Country: None (occurrence: None)
  Receive Date: 20070202
  Receipt Date: 20070125
  Transmission Date: 20070707
  Serious: Yes (Other)
  Sender: FDA-Public Use
  Company Number: 2007UW01736

PATIENT
  Age: 79 Year
  Sex: Male

DRUGS (6)
  1. SEROQUEL [Suspect]
     Indication: DEMENTIA ALZHEIMER'S TYPE
     Route: 048
     Dates: start: 20020101
  2. SEROQUEL [Suspect]
     Route: 048
  3. RISPERDAL [Concomitant]
  4. MEMANTINE HCL [Concomitant]
  5. TRAZODONE HCL [Concomitant]
  6. ARICEPT [Concomitant]

REACTIONS (22)
  - ABDOMINAL DISTENSION [None]
  - ASTHENIA [None]
  - CONSTIPATION [None]
  - CONTUSION [None]
  - DIZZINESS [None]
  - DYSKINESIA [None]
  - DYSPNOEA [None]
  - DYSURIA [None]
  - FLUSHING [None]
  - HEPATOMEGALY [None]
  - ILL-DEFINED DISORDER [None]
  - KIDNEY INFECTION [None]
  - MOVEMENT DISORDER [None]
  - PANCYTOPENIA [None]
  - PELVIC DISCOMFORT [None]
  - RASH [None]
  - RENAL FAILURE CHRONIC [None]
  - SEDATION [None]
  - SKIN EXFOLIATION [None]
  - SPINAL DEFORMITY [None]
  - SPLENOMEGALY [None]
  - WEIGHT INCREASED [None]
